FAERS Safety Report 16227819 (Version 3)
Quarter: 2019Q2

REPORT INFORMATION
  Report Type: Spontaneous
  Country: JP (occurrence: JP)
  Receive Date: 20190423
  Receipt Date: 20190628
  Transmission Date: 20190711
  Serious: Yes (Death, Disabling)
  Sender: FDA-Public Use
  Company Number: JP-ASTRAZENECA-2019SE61392

PATIENT
  Age: 18029 Day
  Sex: Male
  Weight: 71 kg

DRUGS (2)
  1. IMFINZI [Suspect]
     Active Substance: DURVALUMAB
     Indication: NON-SMALL CELL LUNG CANCER
     Route: 042
     Dates: start: 20181105, end: 20190318
  2. XYZAL [Concomitant]
     Active Substance: LEVOCETIRIZINE DIHYDROCHLORIDE
     Indication: SEASONAL ALLERGY
     Route: 048
     Dates: start: 20190121

REACTIONS (6)
  - Oesophageal perforation [Fatal]
  - Aorto-oesophageal fistula [Fatal]
  - Radiation oesophagitis [Fatal]
  - Oesophageal stenosis [Fatal]
  - Aortic rupture [Fatal]
  - Oesophageal ulcer [Fatal]

NARRATIVE: CASE EVENT DATE: 20181217
